FAERS Safety Report 23173461 (Version 1)
Quarter: 2023Q4

REPORT INFORMATION
  Report Type: Other
  Country: FR (occurrence: FR)
  Receive Date: 20231111
  Receipt Date: 20231111
  Transmission Date: 20240110
  Serious: Yes (Life-Threatening, Hospitalization)
  Sender: FDA-Public Use
  Company Number: None

PATIENT

DRUGS (4)
  1. TRAMADOL [Suspect]
     Active Substance: TRAMADOL\TRAMADOL HYDROCHLORIDE
     Indication: Wrong patient received product
     Dosage: 50 MILLIGRAM 1 TOTAL
     Route: 048
     Dates: start: 20231015, end: 20231015
  2. VALIUM [Suspect]
     Active Substance: DIAZEPAM
     Indication: Wrong patient received product
     Dosage: 10 MILLIGRAM 1 TOTAL
     Route: 048
     Dates: start: 20231015, end: 20231015
  3. MIRTAZAPINE [Suspect]
     Active Substance: MIRTAZAPINE
     Indication: Wrong patient received product
     Dosage: 15 MILLIGRAM 1 TOTAL
     Route: 048
     Dates: start: 20231015, end: 20231015
  4. QUETIAPINE [Suspect]
     Active Substance: QUETIAPINE
     Indication: Wrong patient received product
     Dosage: UNK 1 TOTAL
     Route: 048
     Dates: start: 20231015, end: 20231015

REACTIONS (2)
  - Altered state of consciousness [Recovered/Resolved]
  - Product administration error [Recovered/Resolved]

NARRATIVE: CASE EVENT DATE: 20231015
